FAERS Safety Report 6476383-8 (Version None)
Quarter: 2009Q4

REPORT INFORMATION
  Report Type: 
  Country: None (occurrence: None)
  Receive Date: 20091207
  Receipt Date: 20091204
  Transmission Date: 20100525
  Serious: No
  Sender: FDA-Public Use
  Company Number: US-ASTRAZENECA-2007UW09849

PATIENT
  Age: 31 Year
  Sex: Female
  Weight: 125.2 kg

DRUGS (9)
  1. SEROQUEL [Suspect]
     Indication: DEPRESSION
     Route: 048
     Dates: start: 20020101, end: 20090201
  2. SEROQUEL [Suspect]
     Indication: ANXIETY
     Route: 048
     Dates: start: 20020101, end: 20090201
  3. SEROQUEL [Suspect]
     Indication: PSYCHOTIC DISORDER
     Route: 048
     Dates: start: 20020101, end: 20090201
  4. ABILIFY [Concomitant]
     Dates: start: 20090401
  5. GEODON [Concomitant]
     Dates: start: 20090201
  6. HALDOL [Concomitant]
     Dates: start: 19940101
  7. RISPERDAL [Concomitant]
  8. BUSPAR [Concomitant]
  9. DEPAKOTE [Concomitant]

REACTIONS (4)
  - BACK INJURY [None]
  - BLOOD TRIGLYCERIDES INCREASED [None]
  - NECK INJURY [None]
  - TYPE 2 DIABETES MELLITUS [None]
